FAERS Safety Report 6356430-4 (Version None)
Quarter: 2009Q3

REPORT INFORMATION
  Report Type: 
  Country: None (occurrence: None)
  Receive Date: 20090915
  Receipt Date: 20090904
  Transmission Date: 20100115
  Serious: Yes (Hospitalization, Other)
  Sender: FDA-Public Use
  Company Number: US-BAXTER-2009BH012613

PATIENT
  Age: 81 Year
  Sex: Female

DRUGS (3)
  1. DIANEAL [Suspect]
     Indication: PERITONEAL DIALYSIS
     Route: 033
     Dates: start: 20060101
  2. EXTRANEAL [Suspect]
     Indication: PERITONEAL DIALYSIS
     Route: 033
  3. COREG [Concomitant]
     Indication: CARDIAC DISORDER
     Route: 065
     Dates: end: 20090801

REACTIONS (2)
  - HYPOTENSION [None]
  - MYOCARDIAL INFARCTION [None]
